FAERS Safety Report 5160352-4 (Version None)
Quarter: 2006Q4

REPORT INFORMATION
  Report Type: 
  Country: None (occurrence: None)
  Receive Date: 20061121
  Receipt Date: 20061110
  Transmission Date: 20070319
  Serious: Yes (Other)
  Sender: FDA-Public Use
  Company Number: US-2006-017977

PATIENT
  Age: 24 Year
  Sex: Female
  Weight: 64 kg

DRUGS (1)
  1. MIRENA [Suspect]
     Dosage: 20 UG/DAY, CONT, INTRA-UTERINE
     Route: 015

REACTIONS (5)
  - CERVICAL DYSPLASIA [None]
  - CERVICAL STRICTURE [None]
  - IUD MIGRATION [None]
  - OVARIAN CYST [None]
  - POST PROCEDURAL COMPLICATION [None]
